FAERS Safety Report 10696504 (Version 4)
Quarter: 2015Q1

REPORT INFORMATION
  Report Type: Spontaneous
  Country: MY (occurrence: MY)
  Receive Date: 20150107
  Receipt Date: 20150327
  Transmission Date: 20150721
  Serious: Yes (Death)
  Sender: FDA-Public Use
  Company Number: MY-GE HEALTHCARE MEDICAL DIAGNOSTICS-OMPQ-PR-1412S-1648

PATIENT
  Age: 29 Year
  Sex: Male
  Weight: 60 kg

DRUGS (7)
  1. OMNIPAQUE [Suspect]
     Active Substance: IOHEXOL
     Indication: PNEUMOMEDIASTINUM
  2. BACTRIM [Concomitant]
     Active Substance: SULFAMETHOXAZOLE\TRIMETHOPRIM
  3. ASCORBIC ACID. [Concomitant]
     Active Substance: ASCORBIC ACID
  4. OMNIPAQUE [Suspect]
     Active Substance: IOHEXOL
     Indication: PNEUMOCYSTIS JIROVECII PNEUMONIA
     Route: 042
     Dates: start: 20141128, end: 20141128
  5. PREDNISONE. [Concomitant]
     Active Substance: PREDNISONE
  6. OMNIPAQUE [Suspect]
     Active Substance: IOHEXOL
     Indication: DIAGNOSTIC PROCEDURE
  7. FOLIC ACID. [Concomitant]
     Active Substance: FOLIC ACID

REACTIONS (4)
  - Nausea [Fatal]
  - Cardiac arrest [Fatal]
  - Retching [Fatal]
  - Vomiting [Fatal]

NARRATIVE: CASE EVENT DATE: 20141128
